FAERS Safety Report 12278708 (Version 1)
Quarter: 2016Q2

REPORT INFORMATION
  Report Type: Spontaneous
  Country: IT (occurrence: IT)
  Receive Date: 20160418
  Receipt Date: 20160418
  Transmission Date: 20160815
  Serious: Yes (Disabling)
  Sender: FDA-Public Use
  Company Number: PHHY2016IT049550

PATIENT
  Age: 65 Year
  Sex: Female

DRUGS (1)
  1. ZOMETA [Suspect]
     Active Substance: ZOLEDRONIC ACID
     Indication: BREAST NEOPLASM
     Dosage: 4 MG, CYCLIC
     Route: 042
     Dates: start: 20140401, end: 20151001

REACTIONS (2)
  - Tooth abscess [Unknown]
  - Device dislocation [Unknown]

NARRATIVE: CASE EVENT DATE: 201601
